FAERS Safety Report 6069450-4 (Version None)
Quarter: 2009Q1

REPORT INFORMATION
  Report Type: 
  Country: None (occurrence: None)
  Receive Date: 20090206
  Receipt Date: 20090128
  Transmission Date: 20090719
  Serious: Yes (Other)
  Sender: FDA-Public Use
  Company Number: US-PFIZER INC-2009162269

PATIENT
  Sex: Female
  Weight: 58.957 kg

DRUGS (4)
  1. CELEBREX [Suspect]
     Indication: ARTHRITIS
     Route: 048
  2. ULTRAM [Concomitant]
     Indication: GASTRIC NEOPLASM
     Dosage: UNK
  3. FLEXERIL [Concomitant]
     Dosage: UNK
  4. ALL OTHER THERAPEUTIC PRODUCTS [Concomitant]
     Dosage: UNK

REACTIONS (1)
  - SWELLING FACE [None]
